FAERS Safety Report 18006911 (Version 1)
Quarter: 2020Q3

REPORT INFORMATION
  Report Type: Spontaneous
  Country: US (occurrence: US)
  Receive Date: 20200710
  Receipt Date: 20200710
  Transmission Date: 20201103
  Serious: Yes (Life-Threatening, Hospitalization, Other)
  Sender: FDA-Public Use
  Company Number: US-HIKMA PHARMACEUTICALS USA INC.-US-H14001-20-03189

PATIENT
  Age: 44 Year
  Sex: Male

DRUGS (2)
  1. METHYLPREDISOLONE [Suspect]
     Active Substance: METHYLPREDNISOLONE
     Indication: HENOCH-SCHONLEIN PURPURA
     Route: 042
  2. PREDNISONE. [Suspect]
     Active Substance: PREDNISONE
     Indication: HENOCH-SCHONLEIN PURPURA
     Route: 048

REACTIONS (4)
  - Duodenal perforation [Recovering/Resolving]
  - Symptom masked [Recovering/Resolving]
  - Gastrointestinal necrosis [Recovering/Resolving]
  - Gastrointestinal haemorrhage [Recovering/Resolving]
